FAERS Safety Report 25235663 (Version 1)
Quarter: 2025Q2

REPORT INFORMATION
  Report Type: Spontaneous
  Country: US (occurrence: US)
  Receive Date: 20250424
  Receipt Date: 20250424
  Transmission Date: 20250717
  Serious: Yes (Hospitalization)
  Sender: AMGEN
  Company Number: US-AMGEN-USASP2025077070

PATIENT
  Age: 56 Year
  Sex: Male

DRUGS (2)
  1. PREDNISONE [Suspect]
     Active Substance: PREDNISONE
     Indication: Dermatomyositis
     Route: 065
  2. MYCOPHENOLIC ACID [Concomitant]
     Active Substance: MYCOPHENOLIC ACID
     Indication: Dermatomyositis
     Route: 065

REACTIONS (8)
  - Endocarditis staphylococcal [Unknown]
  - Acute kidney injury [Unknown]
  - Acute respiratory failure [Unknown]
  - Septic shock [Unknown]
  - Biliary ascites [Unknown]
  - Gastric perforation [Unknown]
  - Pneumoperitoneum [Unknown]
  - Cardiac arrest [Unknown]
